FAERS Safety Report 5135041-2 (Version None)
Quarter: 2006Q4

REPORT INFORMATION
  Report Type: 
  Country: None (occurrence: None)
  Receive Date: 20060831
  Receipt Date: 20060502
  Transmission Date: 20070319
  Serious: No
  Sender: FDA-Public Use
  Company Number: 2005-BP-12289BP

PATIENT
  Age: 71 Year
  Sex: Female
  Weight: 69 kg

DRUGS (18)
  1. SPIRIVA [Suspect]
     Indication: CHRONIC OBSTRUCTIVE PULMONARY DISEASE
     Dosage: 18 MG (18 MG,QD),IH
     Route: 055
     Dates: start: 20050524, end: 20050610
  2. OXYGEN (OXYGEN) [Concomitant]
  3. ADVAIR (SERETIDE /014020901/) [Concomitant]
  4. PREDNISONE TAB [Concomitant]
  5. IPRATROPIUM/ ALBUTEROL (BREVA) [Concomitant]
  6. PIROXICAM [Concomitant]
  7. AVALIDE (KARVEA HCT) [Concomitant]
  8. PRILOSEC [Concomitant]
  9. ASPIRIN [Concomitant]
  10. COMBIVENT (COMBIVENT /01261001/) [Concomitant]
  11. SLO IRON [Concomitant]
  12. VITAMIN E [Concomitant]
  13. SALAGEN [Concomitant]
  14. CALCET (CALCET /00637401/) [Concomitant]
  15. CAPTOPRIL [Concomitant]
  16. PREVACID [Concomitant]
  17. ACIDOPHILUS XTRA [Concomitant]
  18. XANAX [Concomitant]

REACTIONS (25)
  - APHTHOUS STOMATITIS [None]
  - CAROTID ARTERY OCCLUSION [None]
  - CONFUSIONAL STATE [None]
  - DENTAL CARIES [None]
  - DIZZINESS [None]
  - DRY MOUTH [None]
  - DYSKINESIA [None]
  - DYSPNOEA [None]
  - EPISTAXIS [None]
  - EXERCISE TOLERANCE DECREASED [None]
  - GINGIVAL DISORDER [None]
  - GINGIVAL SWELLING [None]
  - INTERMITTENT CLAUDICATION [None]
  - LEUKOPLAKIA ORAL [None]
  - LIP EXFOLIATION [None]
  - MUSCLE SPASMS [None]
  - MUSCULAR WEAKNESS [None]
  - NODULE [None]
  - OEDEMA MOUTH [None]
  - PAIN IN JAW [None]
  - RASH [None]
  - TOOTHACHE [None]
  - URINARY RETENTION [None]
  - URINARY TRACT INFECTION [None]
  - VISION BLURRED [None]
